FAERS Safety Report 17561394 (Version 2)
Quarter: 2020Q2

REPORT INFORMATION
  Report Type: Spontaneous
  Country: US (occurrence: US)
  Receive Date: 20200319
  Receipt Date: 20200402
  Transmission Date: 20200713
  Serious: No
  Sender: FDA-Public Use
  Company Number: US-VERTEX PHARMACEUTICALS-2020-005537

PATIENT
  Age: 50 Year
  Sex: Female

DRUGS (20)
  1. TRIKAFTA [Suspect]
     Active Substance: ELEXACAFTOR\IVACAFTOR\TEZACAFTOR
     Indication: CYSTIC FIBROSIS
     Dosage: 2 TABS (100MG ELEXACAFTOR/50MG TEZACAFTOR/75MG IVACAFTOR) AM AND 1 TAB (150MG IVACAFTOR) PM
     Route: 048
     Dates: start: 202003, end: 202003
  2. DEXILANT [Concomitant]
     Active Substance: DEXLANSOPRAZOLE
  3. CREON [Concomitant]
     Active Substance: PANCRELIPASE AMYLASE\PANCRELIPASE LIPASE\PANCRELIPASE PROTEASE
  4. TRESIBA [Concomitant]
     Active Substance: INSULIN DEGLUDEC
  5. VITAMIN D [COLECALCIFEROL] [Concomitant]
     Active Substance: CHOLECALCIFEROL
  6. HUMALOG [Concomitant]
     Active Substance: INSULIN LISPRO
  7. ESTRADIOL. [Concomitant]
     Active Substance: ESTRADIOL
  8. PULMOZYME [Concomitant]
     Active Substance: DORNASE ALFA
  9. VENTOLINE [SALBUTAMOL] [Concomitant]
     Active Substance: ALBUTEROL SULFATE
  10. CAYSTON [Concomitant]
     Active Substance: AZTREONAM
  11. ALBUTEROL [SALBUTAMOL] [Concomitant]
     Active Substance: ALBUTEROL
  12. AZITHROMYCIN ANHYDROUS. [Concomitant]
     Active Substance: AZITHROMYCIN ANHYDROUS
  13. CALCIUM [Concomitant]
     Active Substance: CALCIUM
  14. ADVAIR HFA [Concomitant]
     Active Substance: FLUTICASONE PROPIONATE\SALMETEROL XINAFOATE
  15. REPLESTA [Concomitant]
     Active Substance: CHOLECALCIFEROL
  16. MIRALAX [Concomitant]
     Active Substance: POLYETHYLENE GLYCOL 3350
  17. SODIUM CHLORIDE. [Concomitant]
     Active Substance: SODIUM CHLORIDE
  18. PANTOPRAZOLE [Concomitant]
     Active Substance: PANTOPRAZOLE
  19. RANITIDINE. [Concomitant]
     Active Substance: RANITIDINE
  20. PREDNISONE. [Concomitant]
     Active Substance: PREDNISONE

REACTIONS (6)
  - Gastrointestinal pain [Recovered/Resolved]
  - Pain [Recovered/Resolved]
  - Gastrointestinal sounds abnormal [Recovered/Resolved]
  - Peripheral coldness [Not Recovered/Not Resolved]
  - Abdominal pain [Unknown]
  - Abdominal tenderness [Recovered/Resolved]

NARRATIVE: CASE EVENT DATE: 202003
